FAERS Safety Report 4334524-2 (Version None)
Quarter: 2004Q2

REPORT INFORMATION
  Report Type: 
  Country: None (occurrence: None)
  Receive Date: 20040407
  Receipt Date: 20040324
  Transmission Date: 20050107
  Serious: Yes (Hospitalization)
  Sender: FDA-Public Use
  Company Number: BE-GLAXOSMITHKLINE-B0328019A

PATIENT
  Age: 60 Year
  Sex: Male

DRUGS (5)
  1. ZYBAN [Suspect]
  2. CLOPIDOGREL [Concomitant]
     Dosage: 75MG PER DAY
  3. BISOPROLOL FUMARAT [Concomitant]
     Dosage: 2.5MG PER DAY
  4. PERINDOPRIL TERT-BUTYLAMINE [Concomitant]
     Dosage: 4MG PER DAY
  5. ASPIRIN [Concomitant]
     Dosage: 160MG PER DAY

REACTIONS (1)
  - DYSPNOEA [None]
